FAERS Safety Report 25454370 (Version 1)
Quarter: 2025Q2

REPORT INFORMATION
  Report Type: Spontaneous
  Country: FR (occurrence: FR)
  Receive Date: 20250619
  Receipt Date: 20250619
  Transmission Date: 20250717
  Serious: Yes (Other)
  Sender: CELLTRION
  Company Number: None

PATIENT

DRUGS (16)
  1. RITUXIMAB [Suspect]
     Active Substance: RITUXIMAB
     Indication: Acute disseminated encephalomyelitis
     Route: 042
     Dates: start: 20240917, end: 20240917
  2. RITUXIMAB [Suspect]
     Active Substance: RITUXIMAB
     Route: 042
     Dates: start: 20241001, end: 20241001
  3. COTRIMOXAZOLE [Suspect]
     Active Substance: SULFAMETHOXAZOLE\TRIMETHOPRIM
     Indication: Antifungal prophylaxis
     Dosage: 3 DF EVERY 1 WEEK (800/160MG)
     Route: 048
     Dates: start: 20250105, end: 20250121
  4. COTRIMOXAZOLE [Suspect]
     Active Substance: SULFAMETHOXAZOLE\TRIMETHOPRIM
     Dosage: 3 DF EVERY 1 WEEK (800/160MG)
     Route: 048
     Dates: start: 20241021, end: 20241106
  5. PIPERACILLIN SODIUM\TAZOBACTAM SODIUM [Suspect]
     Active Substance: PIPERACILLIN SODIUM\TAZOBACTAM SODIUM
     Indication: Pneumonia
     Route: 042
     Dates: start: 20241205
  6. RAMIPRIL [Suspect]
     Active Substance: RAMIPRIL
     Indication: Hypertension
     Route: 048
     Dates: start: 20250102, end: 20250121
  7. LANSOPRAZOLE [Suspect]
     Active Substance: LANSOPRAZOLE
     Indication: Complication associated with device
     Route: 048
     Dates: start: 20240923
  8. ATARAX [Suspect]
     Active Substance: HYDROXYZINE HYDROCHLORIDE
     Indication: Anxiety
     Route: 048
     Dates: start: 20241220
  9. LOVENOX [Suspect]
     Active Substance: ENOXAPARIN SODIUM
     Indication: Thrombosis prophylaxis
     Route: 058
     Dates: start: 20240909
  10. ALENDRONATE SODIUM [Suspect]
     Active Substance: ALENDRONATE SODIUM
     Indication: Osteoporosis
     Dosage: 70 MG EVERY 1 WEEK
     Route: 048
     Dates: start: 20241205
  11. CALCIUM\CHOLECALCIFEROL [Concomitant]
     Active Substance: CALCIUM\CHOLECALCIFEROL
     Indication: Osteoporosis
     Route: 048
     Dates: start: 20241205
  12. AMLODIPINE [Concomitant]
     Active Substance: AMLODIPINE BESYLATE
     Indication: Hypertension
     Route: 048
     Dates: start: 20240918
  13. HYDROCORTISONE [Concomitant]
     Active Substance: HYDROCORTISONE
     Indication: Acute disseminated encephalomyelitis
     Route: 048
     Dates: start: 20240918
  14. INSULIN GLARGINE [Concomitant]
     Active Substance: INSULIN GLARGINE
     Indication: Steroid diabetes
     Route: 058
     Dates: start: 20241018
  15. DOLIPRANE [Concomitant]
     Active Substance: ACETAMINOPHEN
     Indication: Pain
     Route: 048
     Dates: start: 202411
  16. DEXTROSE MONOHYDRATE\POTASSIUM CHLORIDE\SODIUM CHLORIDE [Concomitant]
     Active Substance: DEXTROSE MONOHYDRATE\POTASSIUM CHLORIDE\SODIUM CHLORIDE
     Indication: Parenteral nutrition
     Route: 042
     Dates: start: 20250113

REACTIONS (2)
  - Agranulocytosis [Not Recovered/Not Resolved]
  - Intentional product use issue [Unknown]

NARRATIVE: CASE EVENT DATE: 20250121
